FAERS Safety Report 9318696 (Version 1)
Quarter: 2013Q2

REPORT INFORMATION
  Report Type: Spontaneous
  Country: US (occurrence: US)
  Receive Date: 20130530
  Receipt Date: 20130530
  Transmission Date: 20140414
  Serious: No
  Sender: FDA-Public Use
  Company Number: US-NOVEN-13US006394

PATIENT
  Age: 9 Year
  Sex: Male

DRUGS (3)
  1. DAYTRANA [Suspect]
     Indication: ATTENTION DEFICIT/HYPERACTIVITY DISORDER
     Dosage: 20 MG, UNK
     Route: 062
     Dates: start: 20130302
  2. CLONIDINE [Concomitant]
     Route: 048
  3. RITALIN [Concomitant]
     Dosage: 10 MG, BEFORE AND AFTER SCHOOL
     Route: 048

REACTIONS (1)
  - Psychomotor hyperactivity [Not Recovered/Not Resolved]
